FAERS Safety Report 8052674-4 (Version None)
Quarter: 2012Q1

REPORT INFORMATION
  Report Type: 
  Country: None (occurrence: None)
  Receive Date: 20120118
  Receipt Date: 20120118
  Transmission Date: 20120608
  Serious: Yes (Hospitalization)
  Sender: FDA-Public Use
  Company Number: None

PATIENT
  Sex: Female
  Weight: 99.79 kg

DRUGS (1)
  1. RITUXAN [Suspect]
     Indication: RHEUMATOID ARTHRITIS
     Dosage: 1000MG
     Route: 041
     Dates: start: 20070621, end: 20120103

REACTIONS (4)
  - ABDOMINAL PAIN LOWER [None]
  - COLITIS [None]
  - RASH ERYTHEMATOUS [None]
  - PYREXIA [None]
